FAERS Safety Report 10495549 (Version 1)
Quarter: 2014Q3

REPORT INFORMATION
  Report Type: Spontaneous
  Country: US (occurrence: None)
  Receive Date: 20140815
  Receipt Date: 20140815
  Transmission Date: 20150326
  Serious: Yes (Hospitalization, Other)
  Sender: FDA-Public Use
  Company Number: ADR-2013-01987

PATIENT
  Age: 41 Year
  Sex: Male

DRUGS (2)
  1. SUFENTANIL [Suspect]
     Active Substance: SUFENTANIL
  2. COMPOUNDED BACLOFEN 4000 MCG/ML [Suspect]
     Active Substance: BACLOFEN

REACTIONS (2)
  - Drug withdrawal syndrome [None]
  - Cardiac arrest [None]

NARRATIVE: CASE EVENT DATE: 20130919
